FAERS Safety Report 9495182 (Version 3)
Quarter: 2013Q4

REPORT INFORMATION
  Report Type: Spontaneous
  Country: US (occurrence: US)
  Receive Date: 20130903
  Receipt Date: 20131008
  Transmission Date: 20140711
  Serious: Yes (Other)
  Sender: FDA-Public Use
  Company Number: US-TEVA-429509USA

PATIENT
  Age: 39 Year
  Sex: Female
  Weight: 64.92 kg

DRUGS (1)
  1. PARAGARD 380A [Suspect]
     Indication: CONTRACEPTION
     Route: 015
     Dates: start: 20031003, end: 20130827

REACTIONS (4)
  - Embedded device [Recovered/Resolved]
  - Menorrhagia [Recovered/Resolved]
  - Device breakage [Recovered/Resolved]
  - Device breakage [Recovered/Resolved]
